FAERS Safety Report 20873425 (Version 2)
Quarter: 2022Q3

REPORT INFORMATION
  Report Type: Spontaneous
  Country: US (occurrence: None)
  Receive Date: 20220525
  Receipt Date: 20220706
  Transmission Date: 20221026
  Serious: Yes (Other)
  Sender: FDA-Public Use
  Company Number: 2022A189575

PATIENT
  Age: 17 Year
  Sex: Male
  Weight: 71.7 kg

DRUGS (1)
  1. TEZSPIRE [Suspect]
     Active Substance: TEZEPELUMAB-EKKO
     Indication: Asthma
     Route: 058
     Dates: start: 202202

REACTIONS (2)
  - Hypersensitivity [Recovered/Resolved]
  - Urticaria [Unknown]

NARRATIVE: CASE EVENT DATE: 20220428
